FAERS Safety Report 5908971-9 (Version None)
Quarter: 2008Q4

REPORT INFORMATION
  Report Type: 
  Country: None (occurrence: None)
  Receive Date: 20081001
  Receipt Date: 20080917
  Transmission Date: 20090506
  Serious: Yes (Other)
  Sender: FDA-Public Use
  Company Number: ENT 2008-0134

PATIENT
  Age: 81 Year
  Sex: Female

DRUGS (7)
  1. COMTAN [Suspect]
     Indication: PARKINSON'S DISEASE
     Dosage: 100 MG, TID ORAL
     Route: 048
     Dates: start: 20080709, end: 20080711
  2. LEVODOPA BENSERAZIDE HYDROCHLORIDE [Concomitant]
  3. SELEGILINE HCL [Concomitant]
  4. GASMOTIN [Concomitant]
  5. PURSENNID [Concomitant]
  6. ALOSENN [Concomitant]
  7. BLOPRESS [Concomitant]

REACTIONS (2)
  - BLOOD ALKALINE PHOSPHATASE INCREASED [None]
  - HALLUCINATION [None]
